FAERS Safety Report 20510735 (Version 1)
Quarter: 2022Q1

REPORT INFORMATION
  Report Type: Other
  Country: US (occurrence: US)
  Receive Date: 20220224
  Receipt Date: 20220224
  Transmission Date: 20220423
  Serious: No
  Sender: FDA-Public Use
  Company Number: US-MACROGENICS-2021000288

PATIENT
  Age: 61 Year
  Sex: Female

DRUGS (4)
  1. MARGENZA [Suspect]
     Active Substance: MARGETUXIMAB-CMKB
     Indication: Breast cancer metastatic
     Dosage: 15 MILLIGRAM/KILOGRAM, Q3WEEKS
     Route: 042
     Dates: start: 20210428, end: 20210428
  2. MARGENZA [Suspect]
     Active Substance: MARGETUXIMAB-CMKB
     Dosage: 15 MILLIGRAM/KILOGRAM, Q3WEEKS
     Route: 042
     Dates: start: 20210609, end: 20210609
  3. GEMCITABINE [Concomitant]
     Active Substance: GEMCITABINE
     Indication: Breast cancer metastatic
     Dosage: 1000 MILLIGRAM/SQ. METER, Q3WEEKS
     Route: 042
     Dates: start: 20210428, end: 20210428
  4. GEMCITABINE [Concomitant]
     Active Substance: GEMCITABINE
     Dosage: 500 MILLIGRAM/SQ. METER, Q3WEEKS
     Route: 042
     Dates: start: 20210609, end: 20210609

REACTIONS (1)
  - Disease progression [Not Recovered/Not Resolved]

NARRATIVE: CASE EVENT DATE: 20210703
